FAERS Safety Report 5924852-9 (Version None)
Quarter: 2008Q4

REPORT INFORMATION
  Report Type: 
  Country: None (occurrence: None)
  Receive Date: 20081020
  Receipt Date: 20081020
  Transmission Date: 20090506
  Serious: No
  Sender: FDA-Public Use
  Company Number: None

PATIENT
  Sex: Female
  Weight: 79.3795 kg

DRUGS (1)
  1. NITROQUICK .4 MG KV PHARM FOR ETHEX CORP. [Suspect]
     Indication: MYOCARDIAL INFARCTION
     Dosage: 1 TABLET 3 PO
     Route: 048
     Dates: start: 20081018, end: 20081018

REACTIONS (2)
  - ANXIETY [None]
  - PRODUCT QUALITY ISSUE [None]
